FAERS Safety Report 21628414 (Version 1)
Quarter: 2022Q4

REPORT INFORMATION
  Report Type: Spontaneous
  Country: US (occurrence: None)
  Receive Date: 20221121
  Receipt Date: 20221121
  Transmission Date: 20230113
  Serious: No
  Sender: FDA-Public Use
  Company Number: None

PATIENT
  Age: 82 Year
  Sex: Male
  Weight: 83.25 kg

DRUGS (2)
  1. CEPHALEXIN [Suspect]
     Active Substance: CEPHALEXIN
     Indication: Cystitis
     Dosage: OTHER QUANTITY : 1 CAPSULE(S);?FREQUENCY : EVERY 4 HOURS;?
     Route: 048
  2. mult supplements [Concomitant]

REACTIONS (3)
  - Pain in extremity [None]
  - Burning sensation [None]
  - Visual impairment [None]

NARRATIVE: CASE EVENT DATE: 20221120
